FAERS Safety Report 11001757 (Version 1)
Quarter: 2015Q2

REPORT INFORMATION
  Report Type: Spontaneous
  Country: US (occurrence: US)
  Receive Date: 20150408
  Receipt Date: 20150408
  Transmission Date: 20150821
  Serious: Yes (Other)
  Sender: FDA-Public Use
  Company Number: US-JAZZ-2015-US-004787

PATIENT
  Age: 52 Year
  Sex: Male
  Weight: 72.56 kg

DRUGS (29)
  1. XYREM [Suspect]
     Active Substance: SODIUM OXYBATE
     Dosage: 3.75 G, BID
     Route: 048
     Dates: start: 201501
  2. NORVIR [Concomitant]
     Active Substance: RITONAVIR
     Indication: HIV INFECTION
     Dosage: UNK
     Dates: start: 20001201
  3. ISENTRESS [Concomitant]
     Active Substance: RALTEGRAVIR POTASSIUM
     Indication: HIV INFECTION
     Dosage: UNK
     Dates: start: 20141201
  4. VITAMIN D2 [Concomitant]
     Active Substance: ERGOCALCIFEROL
     Indication: VITAMIN D DEFICIENCY
     Dosage: UNK
     Dates: start: 20141201
  5. METAMUCIL [Concomitant]
     Active Substance: PLANTAGO SEED
     Indication: INFLAMMATORY BOWEL DISEASE
     Dosage: UNK
     Dates: start: 20141201
  6. MODAFINIL. [Concomitant]
     Active Substance: MODAFINIL
     Indication: PRODUCT USED FOR UNKNOWN INDICATION
     Dosage: UNK
     Dates: start: 20141201
  7. LIALDA [Concomitant]
     Active Substance: MESALAMINE
     Indication: INFLAMMATORY BOWEL DISEASE
     Dosage: UNK
     Dates: start: 20141201
  8. EMTRIVA [Concomitant]
     Active Substance: EMTRICITABINE
     Indication: HIV INFECTION
     Dosage: UNK
     Dates: start: 20141201
  9. PENCICLOVIR [Concomitant]
     Active Substance: PENCICLOVIR
     Indication: PROPHYLAXIS
     Dosage: UNK
  10. PREZISTA [Concomitant]
     Active Substance: DARUNAVIR ETHANOLATE
     Indication: HIV INFECTION
     Dosage: UNK
     Dates: start: 20141222
  11. WELLBUTRIN [Concomitant]
     Active Substance: BUPROPION HYDROCHLORIDE
     Indication: DEPRESSION
     Dosage: UNK
     Dates: start: 20141201
  12. CARDIZEM CD [Concomitant]
     Active Substance: DILTIAZEM HYDROCHLORIDE
     Indication: PRODUCT USED FOR UNKNOWN INDICATION
     Dosage: UNK
     Dates: start: 20141201
  13. NIACIN. [Concomitant]
     Active Substance: NIACIN
     Indication: PRODUCT USED FOR UNKNOWN INDICATION
     Dosage: UNK
     Dates: start: 20141201
  14. VITAMIN D [Concomitant]
     Active Substance: CHOLECALCIFEROL
     Indication: PRODUCT USED FOR UNKNOWN INDICATION
     Dosage: UNK
     Dates: start: 20141201
  15. OMEGA-3 ACIDS [Concomitant]
     Active Substance: OMEGA-3 FATTY ACIDS
     Indication: NUTRITIONAL SUPPLEMENTATION
     Dosage: UNK
     Dates: start: 20141201
  16. ACYCLOVIR. [Concomitant]
     Active Substance: ACYCLOVIR
     Indication: PRODUCT USED FOR UNKNOWN INDICATION
     Dosage: UNK
     Dates: start: 20141201
  17. PROBIOTICS [Concomitant]
     Active Substance: PROBIOTICS NOS
     Indication: INFLAMMATORY BOWEL DISEASE
     Dosage: UNK
     Dates: start: 20141201
  18. DILTIAZEM [Concomitant]
     Active Substance: DILTIAZEM
     Indication: MYOCARDIAL BRIDGING
     Dosage: UNK
  19. METFORMIN [Concomitant]
     Active Substance: METFORMIN HYDROCHLORIDE
     Indication: TYPE 2 DIABETES MELLITUS
     Dosage: UNK
     Dates: start: 20141201
  20. TESTOSTERONE. [Concomitant]
     Active Substance: TESTOSTERONE
     Indication: BLOOD TESTOSTERONE DECREASED
     Dosage: UNK
     Route: 061
  21. ANDROGEL [Concomitant]
     Active Substance: TESTOSTERONE
     Indication: PRODUCT USED FOR UNKNOWN INDICATION
     Dosage: UNK
     Dates: start: 20141201
  22. NITROSTAT [Concomitant]
     Active Substance: NITROGLYCERIN
     Indication: PRODUCT USED FOR UNKNOWN INDICATION
     Dosage: UNK
     Dates: start: 20141201
  23. XYREM [Suspect]
     Active Substance: SODIUM OXYBATE
     Indication: NARCOLEPSY
     Dosage: 2.25 G, BID
     Route: 048
     Dates: start: 201501, end: 201501
  24. DEXILANT [Concomitant]
     Active Substance: DEXLANSOPRAZOLE
     Indication: GASTRIC PH DECREASED
     Dosage: UNK
     Dates: start: 20141201
  25. WELLBUTRIN [Concomitant]
     Active Substance: BUPROPION HYDROCHLORIDE
     Indication: NARCOLEPSY
  26. VITAMIN D2 [Concomitant]
     Active Substance: ERGOCALCIFEROL
     Indication: OSTEOPOROSIS
  27. CANASA [Concomitant]
     Active Substance: MESALAMINE
     Indication: PRODUCT USED FOR UNKNOWN INDICATION
     Dosage: UNK
     Dates: start: 20141201
  28. ASPIRIN. [Concomitant]
     Active Substance: ASPIRIN
     Indication: PROPHYLAXIS
     Dosage: UNK
     Dates: start: 20141201
  29. WELLBUTRIN [Concomitant]
     Active Substance: BUPROPION HYDROCHLORIDE
     Indication: SMOKING CESSATION THERAPY

REACTIONS (6)
  - Inflammatory bowel disease [Recovered/Resolved]
  - Condition aggravated [Recovered/Resolved]
  - Abdominal discomfort [Recovered/Resolved]
  - Paranasal sinus discomfort [Recovering/Resolving]
  - Gastrointestinal pain [Recovered/Resolved]
  - Nasopharyngitis [Recovering/Resolving]

NARRATIVE: CASE EVENT DATE: 201503
